FAERS Safety Report 6252056-1 (Version None)
Quarter: 2009Q2

REPORT INFORMATION
  Report Type: 
  Country: None (occurrence: None)
  Receive Date: 20090630
  Receipt Date: 20070103
  Transmission Date: 20091009
  Serious: Yes (Hospitalization)
  Sender: FDA-Public Use
  Company Number: US-ROCHE-638748

PATIENT
  Sex: Male

DRUGS (31)
  1. ENFUVIRTIDE [Suspect]
     Route: 065
     Dates: start: 20060629, end: 20070516
  2. KALETRA [Concomitant]
     Dates: start: 20060201, end: 20060802
  3. TRIZIVIR [Concomitant]
     Dates: start: 20060201, end: 20070516
  4. VIREAD [Concomitant]
     Dates: start: 20060201, end: 20070516
  5. NORVIR [Concomitant]
     Dates: start: 20060629, end: 20060827
  6. NORVIR [Concomitant]
     Dates: start: 20070516, end: 20070827
  7. PREZISTA [Concomitant]
     Dates: start: 20060629, end: 20070827
  8. TRUVADA [Concomitant]
     Dates: start: 20070516, end: 20070827
  9. DAPSONE [Concomitant]
     Dates: start: 20020924, end: 20070110
  10. ZITHROMAX [Concomitant]
     Dates: start: 20030702, end: 20070101
  11. DIFLUCAN [Concomitant]
     Dates: start: 20070105, end: 20070126
  12. DIFLUCAN [Concomitant]
     Dates: start: 20060906, end: 20070115
  13. DIFLUCAN [Concomitant]
     Dates: start: 20070516
  14. CLINDAMYCIN [Concomitant]
     Dates: start: 20061227, end: 20070117
  15. CLINDAMYCIN [Concomitant]
     Dates: start: 20070215, end: 20070301
  16. CLINDAMYCIN [Concomitant]
     Dates: start: 20070504, end: 20070511
  17. LEVAQUIN [Concomitant]
     Dates: start: 20070103, end: 20070101
  18. LEVAQUIN [Concomitant]
     Dates: start: 20070413, end: 20070419
  19. LEVAQUIN [Concomitant]
     Dates: start: 20070419, end: 20070426
  20. MEPRON [Concomitant]
     Dosage: DOASE REPORTED AS 5 CC.
     Dates: start: 20070110, end: 20070419
  21. MEPRON [Concomitant]
     Dates: start: 20070413, end: 20070419
  22. DOXYCYCLINE [Concomitant]
     Dates: start: 20070215, end: 20070301
  23. VANCOMYCIN [Concomitant]
     Dates: start: 20070413, end: 20070419
  24. VANCOMYCIN [Concomitant]
     Dates: start: 20070504, end: 20070511
  25. VANCOMYCIN [Concomitant]
     Dates: start: 20070625, end: 20070723
  26. UNASYN [Concomitant]
     Dates: start: 20070504, end: 20070511
  27. CEFEPIME [Concomitant]
     Dates: start: 20070625, end: 20070723
  28. AVELOX [Concomitant]
     Dates: start: 20070620, end: 20070630
  29. FLAGYL [Concomitant]
     Dates: start: 20070625, end: 20070723
  30. CIPRO [Concomitant]
     Dates: start: 20070725, end: 20070827
  31. CIPRO [Concomitant]
     Dates: start: 20070611, end: 20070620

REACTIONS (8)
  - ACQUIRED IMMUNODEFICIENCY SYNDROME [None]
  - ACUTE SINUSITIS [None]
  - ASTHMA [None]
  - CELLULITIS ORBITAL [None]
  - CYANOSIS [None]
  - DYSPNOEA [None]
  - NORMOCHROMIC NORMOCYTIC ANAEMIA [None]
  - STAPHYLOCOCCAL ABSCESS [None]
